FAERS Safety Report 8758169 (Version 2)
Quarter: 2012Q4

REPORT INFORMATION
  Report Type: 
  Country: SE (occurrence: SE)
  Receive Date: 20120828
  Receipt Date: 20120828
  Transmission Date: 20130627
  Serious: Yes (Other)
  Sender: FDA-Public Use
  Company Number: CHPA2012SE016402

PATIENT
  Age: 55 Year
  Sex: Male
  Weight: 83 kg

DRUGS (1)
  1. VOLTACARE [Suspect]
     Indication: TENDONITIS
     Dosage: 1 DF, ONCE/SINGLE
     Route: 061
     Dates: start: 20120625

REACTIONS (4)
  - Burns third degree [Recovered/Resolved with Sequelae]
  - Skin necrosis [Recovered/Resolved with Sequelae]
  - Infection [Recovered/Resolved with Sequelae]
  - Scar [Unknown]
